FAERS Safety Report 9433332 (Version 3)
Quarter: 2014Q3

REPORT INFORMATION
  Report Type: Spontaneous
  Country: US (occurrence: US)
  Receive Date: 20130731
  Receipt Date: 20140728
  Transmission Date: 20150326
  Serious: Yes (Hospitalization, Other)
  Sender: FDA-Public Use
  Company Number: US-009507513-1307USA017130

PATIENT
  Sex: Female
  Weight: 68.48 kg

DRUGS (2)
  1. SYNTHROID [Concomitant]
     Active Substance: LEVOTHYROXINE SODIUM
     Indication: HYPOTHYROIDISM
     Dosage: 200 MICROGRAM, QD
     Dates: start: 1992
  2. NUVARING [Suspect]
     Active Substance: ETHINYL ESTRADIOL\ETONOGESTREL
     Indication: CONTRACEPTION
     Dosage: 1 RING INTRAVAGINALLY FOR 3 WEEKS
     Route: 067
     Dates: start: 20080327, end: 201302

REACTIONS (16)
  - Deep vein thrombosis [Unknown]
  - Cough [Unknown]
  - Acute sinusitis [Unknown]
  - Rash [Unknown]
  - Anaemia [Unknown]
  - Thrombosis [Unknown]
  - Genital herpes [Unknown]
  - Urinary tract infection [Unknown]
  - Local swelling [Unknown]
  - Upper respiratory tract infection [Unknown]
  - Pulmonary embolism [Unknown]
  - Otitis media chronic [Unknown]
  - Sinus tachycardia [Unknown]
  - Drug hypersensitivity [Unknown]
  - Herpes simplex [Unknown]
  - Coagulopathy [Unknown]

NARRATIVE: CASE EVENT DATE: 2013
